FAERS Safety Report 11279636 (Version 1)
Quarter: 2015Q3

REPORT INFORMATION
  Report Type: Spontaneous
  Country: US (occurrence: US)
  Receive Date: 20150717
  Receipt Date: 20150717
  Transmission Date: 20151125
  Serious: No
  Sender: FDA-Public Use
  Company Number: US-009507513-1507USA003563

PATIENT
  Age: 72 Year
  Sex: Female

DRUGS (1)
  1. KEYTRUDA [Suspect]
     Active Substance: PEMBROLIZUMAB
     Indication: PALLIATIVE CARE
     Dosage: 152.75 MG EVERY 22 DAYS
     Route: 042
     Dates: start: 20150611, end: 2015

REACTIONS (5)
  - Pain in extremity [Unknown]
  - Musculoskeletal chest pain [Unknown]
  - Musculoskeletal pain [Unknown]
  - Pulmonary mass [Unknown]
  - Somnolence [Unknown]

NARRATIVE: CASE EVENT DATE: 20150626
